FAERS Safety Report 18422790 (Version 1)
Quarter: 2020Q4

REPORT INFORMATION
  Report Type: Spontaneous
  Country: US (occurrence: US)
  Receive Date: 20201023
  Receipt Date: 20201023
  Transmission Date: 20210114
  Serious: No
  Sender: FDA-Public Use
  Company Number: US-PERRIGO-19US014013

PATIENT

DRUGS (1)
  1. NICOTINE POLACRILEX [Suspect]
     Active Substance: NICOTINE
     Indication: NICOTINE DEPENDENCE
     Dosage: UNKNOWN, UNKNOWN
     Route: 002
     Dates: start: 201911

REACTIONS (5)
  - Ageusia [Unknown]
  - Glossitis [Unknown]
  - Tongue ulceration [Unknown]
  - Off label use [Unknown]
  - Tongue discolouration [Unknown]

NARRATIVE: CASE EVENT DATE: 201911
